FAERS Safety Report 4655370-6 (Version None)
Quarter: 2005Q2

REPORT INFORMATION
  Report Type: 
  Country: None (occurrence: None)
  Receive Date: 20050505
  Receipt Date: 20050427
  Transmission Date: 20051028
  Serious: Yes (Hospitalization)
  Sender: FDA-Public Use
  Company Number: USA041287151

PATIENT
  Age: 76 Year
  Sex: Female
  Weight: 66 kg

DRUGS (2)
  1. EVISTA [Suspect]
     Indication: OSTEOPENIA
     Dosage: 60 MG DAY
     Dates: start: 20000101, end: 20041125
  2. FORTEO [Suspect]
     Indication: OSTEOPOROSIS
     Dosage: 20 UG DAY
     Dates: start: 20041126

REACTIONS (15)
  - ARTHRALGIA [None]
  - BLOOD ALKALINE PHOSPHATASE INCREASED [None]
  - BLOOD CHOLESTEROL INCREASED [None]
  - BUTTOCK PAIN [None]
  - DISEASE PROGRESSION [None]
  - DRY SKIN [None]
  - INJECTION SITE ERYTHEMA [None]
  - JOINT SWELLING [None]
  - OEDEMA PERIPHERAL [None]
  - OSTEOPOROSIS [None]
  - PAIN IN EXTREMITY [None]
  - PHARMACEUTICAL PRODUCT COMPLAINT [None]
  - RASH PRURITIC [None]
  - SPINAL COLUMN STENOSIS [None]
  - STOMACH DISCOMFORT [None]
